FAERS Safety Report 4818105-X (Version None)
Quarter: 2005Q4

REPORT INFORMATION
  Report Type: 
  Country: None (occurrence: None)
  Receive Date: 20051102
  Receipt Date: 20051028
  Transmission Date: 20060501
  Serious: Yes (Hospitalization)
  Sender: FDA-Public Use
  Company Number: 418112

PATIENT
  Sex: Male

DRUGS (3)
  1. DILATREND [Suspect]
     Indication: DRUG USE FOR UNKNOWN INDICATION
     Dosage: 6.25MG TWICE PER DAY
     Route: 065
     Dates: start: 20040615
  2. LISINOPRIL [Concomitant]
     Dates: start: 20040615
  3. BLACKMORES [Concomitant]

REACTIONS (4)
  - CARDIAC FLUTTER [None]
  - EYE PAIN [None]
  - FEELING COLD [None]
  - TACHYCARDIA [None]
